FAERS Safety Report 5841946-7 (Version None)
Quarter: 2008Q3

REPORT INFORMATION
  Report Type: 
  Country: None (occurrence: None)
  Receive Date: 20080812
  Receipt Date: 19980720
  Transmission Date: 20090109
  Serious: Yes (Death)
  Sender: FDA-Public Use
  Company Number: US-MERCK-98070325

PATIENT
  Age: 29 Year
  Sex: Female

DRUGS (6)
  1. SINGULAIR [Suspect]
     Indication: ASTHMA
     Route: 065
     Dates: start: 19980324, end: 19980601
  2. FLOVENT [Concomitant]
     Indication: ASTHMA
     Route: 065
     Dates: start: 19980401, end: 19980601
  3. SEREVENT [Concomitant]
     Indication: ASTHMA
     Route: 065
     Dates: start: 19980401
  4. FLONASE [Concomitant]
     Indication: NASAL POLYPS
     Route: 065
     Dates: start: 19980401, end: 19980601
  5. ALBUTEROL [Concomitant]
     Indication: ASTHMA
     Route: 065
     Dates: start: 19900101
  6. PREDNISONE [Concomitant]
     Indication: LUNG INFILTRATION
     Route: 065

REACTIONS (2)
  - ABORTION SPONTANEOUS [None]
  - DRUG EXPOSURE DURING PREGNANCY [None]
